FAERS Safety Report 9868799 (Version 1)
Quarter: 2014Q1

REPORT INFORMATION
  Report Type: Spontaneous
  Country: GB (occurrence: GB)
  Receive Date: 20140204
  Receipt Date: 20140204
  Transmission Date: 20141002
  Serious: Yes (Life-Threatening, Hospitalization)
  Sender: FDA-Public Use
  Company Number: US-ASTRAZENECA-2014SE07227

PATIENT
  Age: 62 Day
  Sex: Male

DRUGS (8)
  1. SYNAGIS [Suspect]
     Indication: ANTIVIRAL PROPHYLAXIS
     Route: 030
     Dates: start: 20140108, end: 20140108
  2. CYCLOPENTOLATE HYDROCHLORIDE [Concomitant]
     Indication: RETINOPATHY OF PREMATURITY
     Dosage: 1 AD ONCE
     Route: 061
     Dates: start: 20140107, end: 20140107
  3. PHENYLEPHRINE HYDROCHLORIDE [Concomitant]
     Indication: PRODUCT USED FOR UNKNOWN INDICATION
     Dosage: 1 AD
     Route: 061
     Dates: start: 20140107, end: 20140107
  4. RANITIDINE [Concomitant]
     Indication: GASTROOESOPHAGEAL REFLUX DISEASE
     Route: 048
     Dates: start: 20131222
  5. FLUCOXACILLIN [Concomitant]
     Indication: PRODUCT USED FOR UNKNOWN INDICATION
     Route: 042
     Dates: start: 20131222, end: 20131224
  6. CAFFEINE CITRATE [Concomitant]
     Indication: PREMATURE BABY
     Route: 048
     Dates: start: 20131202, end: 20131221
  7. BENZYLPENICIL [Concomitant]
     Indication: SEPSIS
  8. GENTAMICIN [Concomitant]
     Indication: SEPSIS

REACTIONS (3)
  - Apnoeic attack [Recovering/Resolving]
  - Bradycardia [Recovering/Resolving]
  - Oxygen saturation decreased [Recovering/Resolving]
